FAERS Safety Report 9416793 (Version 2)
Quarter: 2014Q3

REPORT INFORMATION
  Report Type: Spontaneous
  Country: US (occurrence: US)
  Receive Date: 20130724
  Receipt Date: 20140723
  Transmission Date: 20150326
  Serious: No
  Sender: FDA-Public Use
  Company Number: US-GALDERMA-US13000503

PATIENT
  Age: 61 Year
  Sex: Male
  Weight: 91 kg

DRUGS (8)
  1. ORACEA [Suspect]
     Active Substance: DOXYCYCLINE
     Indication: ROSACEA
     Route: 048
     Dates: start: 2008
  2. MULTIVITAMIN [Concomitant]
     Active Substance: VITAMINS
     Route: 048
  3. GARLIQUE [Concomitant]
     Active Substance: GARLIC
     Route: 048
     Dates: start: 2008
  4. GNC FISH OIL [Concomitant]
     Route: 048
     Dates: start: 2010
  5. CENTRUM SILVER [Concomitant]
     Active Substance: VITAMINS
     Route: 048
     Dates: start: 2008
  6. METAMUCIL [Concomitant]
     Active Substance: PLANTAGO SEED
     Route: 048
     Dates: start: 2008
  7. MODUCARE [Concomitant]
     Route: 048
     Dates: start: 2010
  8. CINNAMON. [Concomitant]
     Active Substance: CINNAMON
     Route: 048
     Dates: start: 2012

REACTIONS (2)
  - White blood cell count decreased [Recovering/Resolving]
  - Red blood cell count decreased [Not Recovered/Not Resolved]

NARRATIVE: CASE EVENT DATE: 201012
